FAERS Safety Report 16158701 (Version 2)
Quarter: 2019Q4

REPORT INFORMATION
  Report Type: Spontaneous
  Country: FR (occurrence: FR)
  Receive Date: 20190404
  Receipt Date: 20191011
  Transmission Date: 20200122
  Serious: Yes (Death, Life-Threatening)
  Sender: FDA-Public Use
  Company Number: FR-PFIZER INC-2019143719

PATIENT
  Age: 16 Year
  Sex: Female
  Weight: 44 kg

DRUGS (6)
  1. AMSACRINE [Suspect]
     Active Substance: AMSACRINE
     Indication: BONE MARROW CONDITIONING REGIMEN
     Dosage: 141 MG, 1X/DAY
     Route: 042
     Dates: start: 20190226, end: 20190301
  2. FLUDARABINE PHOSPHATE. [Suspect]
     Active Substance: FLUDARABINE PHOSPHATE
     Indication: BONE MARROW CONDITIONING REGIMEN
     Dosage: 42.5 MG, 1X/DAY
     Route: 042
     Dates: start: 20190226, end: 20190301
  3. DEFITELIO [Suspect]
     Active Substance: DEFIBROTIDE SODIUM
     Indication: PROPHYLAXIS
     Dosage: 1096 MG, 1X/DAY
     Route: 042
     Dates: start: 20190226, end: 20190305
  4. CYTARABINE. [Suspect]
     Active Substance: CYTARABINE
     Indication: BONE MARROW CONDITIONING REGIMEN
     Dosage: 2.82 G, 1X/DAY
     Route: 042
     Dates: start: 20190226, end: 20190302
  5. BUSULFAN. [Suspect]
     Active Substance: BUSULFAN
     Indication: BONE MARROW CONDITIONING REGIMEN
     Dosage: 70 MG, 1X/DAY
     Route: 042
     Dates: start: 20190305, end: 20190305
  6. ONDANSETRON [Suspect]
     Active Substance: ONDANSETRON
     Indication: PROPHYLAXIS OF NAUSEA AND VOMITING
     Dosage: 16 MG, 1X/DAY
     Route: 042
     Dates: start: 20190225, end: 20190304

REACTIONS (2)
  - Posterior reversible encephalopathy syndrome [Recovered/Resolved]
  - Neoplasm progression [Fatal]

NARRATIVE: CASE EVENT DATE: 20190305
